APPROVED DRUG PRODUCT: CLONIDINE HYDROCHLORIDE
Active Ingredient: CLONIDINE HYDROCHLORIDE
Strength: 0.3MG
Dosage Form/Route: TABLET;ORAL
Application: A070923 | Product #001 | TE Code: AB
Applicant: TP ANDA HOLDINGS LLC
Approved: Sep 4, 1987 | RLD: No | RS: No | Type: RX